FAERS Safety Report 18053771 (Version 3)
Quarter: 2020Q4

REPORT INFORMATION
  Report Type: Spontaneous
  Country: US (occurrence: US)
  Receive Date: 20200722
  Receipt Date: 20201208
  Transmission Date: 20210113
  Serious: Yes (Other)
  Sender: FDA-Public Use
  Company Number: US-TEVA-2020-US-1804326

PATIENT
  Age: 67 Year
  Sex: Male

DRUGS (5)
  1. VALSARTAN/HYDROCHLOROTHIAZIDE MACLEODS [Suspect]
     Active Substance: HYDROCHLOROTHIAZIDE\VALSARTAN
     Indication: HYPERTENSION
     Dosage: VALSARTAN 80 MG/HYDROCHLOROTHIAZIDE 12.5 MG
     Route: 065
     Dates: start: 201801, end: 201808
  2. ZANTAC [Concomitant]
     Active Substance: RANITIDINE HYDROCHLORIDE
     Indication: ABDOMINAL DISCOMFORT
     Dosage: AS NEEDED
     Dates: start: 2010, end: 201809
  3. VALSARTAN W/HYDROCHLOROTHIAZIDE ACTAVIS [Suspect]
     Active Substance: HYDROCHLOROTHIAZIDE\VALSARTAN
     Indication: HYPERTENSION
     Dosage: VALSARTAN 80MG/HYDROCHLOROTHIAZIDE 12.5 MG
     Route: 065
  4. ZOCOR [Concomitant]
     Active Substance: SIMVASTATIN
     Indication: BLOOD CHOLESTEROL
     Dosage: TAKEN DAILY, ONGOING
     Dates: start: 2000
  5. RANITIDINE. [Concomitant]
     Active Substance: RANITIDINE
     Indication: ABDOMINAL DISCOMFORT
     Dosage: DOSAGE: 150MILLIGRAMS DAILY
     Dates: end: 2018

REACTIONS (1)
  - Oesophageal carcinoma [Not Recovered/Not Resolved]
